FAERS Safety Report 8138154 (Version 3)
Quarter: 2014Q2

REPORT INFORMATION
  Report Type: Spontaneous
  Country: US (occurrence: US)
  Receive Date: 20110915
  Receipt Date: 20140523
  Transmission Date: 20141212
  Serious: Yes (Hospitalization)
  Sender: FDA-Public Use
  Company Number: US-GLAXOSMITHKLINE-A0923623A

PATIENT
  Age: 66 Year
  Sex: Female
  Weight: 93.6 kg

DRUGS (2)
  1. AVANDIA [Suspect]
     Indication: DIABETES MELLITUS
     Dosage: 4MG TWICE PER DAY
     Route: 048
     Dates: start: 2000, end: 200703
  2. AVANDAMET [Suspect]
     Indication: DIABETES MELLITUS
     Route: 048
     Dates: end: 2006

REACTIONS (8)
  - Myocardial infarction [Recovering/Resolving]
  - Coronary artery disease [Unknown]
  - Cardiac failure congestive [Unknown]
  - Cardiac arrest [Unknown]
  - Pleural effusion [Unknown]
  - Coronary artery thrombosis [Unknown]
  - Cardiogenic shock [Unknown]
  - Respiratory failure [Unknown]
